FAERS Safety Report 17460837 (Version 5)
Quarter: 2020Q1

REPORT INFORMATION
  Report Type: Spontaneous
  Country: US (occurrence: US)
  Receive Date: 20200226
  Receipt Date: 20200316
  Transmission Date: 20200409
  Serious: Yes (Life-Threatening, Other)
  Sender: FDA-Public Use
  Company Number: US-GE HEALTHCARE LIFE SCIENCES-2020CSU000837

PATIENT
  Age: 72 Year
  Sex: Male
  Weight: 80.73 kg

DRUGS (15)
  1. VISIPAQUE [Suspect]
     Active Substance: IODIXANOL
     Indication: ANGINA UNSTABLE
  2. NITROGLYCERIN. [Concomitant]
     Active Substance: NITROGLYCERIN
     Dosage: 200 MCG
     Route: 013
     Dates: start: 20200213
  3. LIDOCAINE. [Concomitant]
     Active Substance: LIDOCAINE
     Indication: LOCAL ANAESTHESIA
     Dosage: 3 ML
     Route: 058
     Dates: start: 20200213
  4. BENADRYL [Concomitant]
     Active Substance: DIPHENHYDRAMINE HYDROCHLORIDE
     Dosage: 50 MG
     Route: 042
     Dates: start: 20200213
  5. HEPARIN [Concomitant]
     Active Substance: HEPARIN SODIUM
     Dosage: 1000 U
     Route: 042
     Dates: start: 20200213
  6. PLAVIX [Concomitant]
     Active Substance: CLOPIDOGREL BISULFATE
     Dosage: 300 MG
     Route: 048
     Dates: start: 20200213
  7. VERSED [Concomitant]
     Active Substance: MIDAZOLAM HYDROCHLORIDE
     Dosage: 1 MG
     Route: 042
     Dates: start: 20200213
  8. VISIPAQUE [Suspect]
     Active Substance: IODIXANOL
     Indication: CORONARY ARTERIAL STENT INSERTION
  9. VISIPAQUE [Suspect]
     Active Substance: IODIXANOL
     Indication: CATHETERISATION CARDIAC
     Dosage: 180 ML, SINGLE
     Route: 022
     Dates: start: 20200213, end: 20200213
  10. HEPARIN [Concomitant]
     Active Substance: HEPARIN SODIUM
     Dosage: 2500 U
     Route: 013
     Dates: start: 20200213
  11. INTEGRILIN [Concomitant]
     Active Substance: EPTIFIBATIDE
     Dosage: 7.3 ML
     Route: 042
     Dates: start: 20200213
  12. METOPROLOL SUCCINATE. [Concomitant]
     Active Substance: METOPROLOL SUCCINATE
     Dosage: 50 MG, QD
  13. FENTANYL. [Concomitant]
     Active Substance: FENTANYL
     Dosage: 50 MCG
     Route: 042
     Dates: start: 20200213
  14. VERAPAMIL [Concomitant]
     Active Substance: VERAPAMIL HYDROCHLORIDE
     Dosage: 2.5 MG
     Route: 013
     Dates: start: 20200213
  15. ASPIRIN. [Concomitant]
     Active Substance: ASPIRIN
     Indication: ANTIPLATELET THERAPY
     Dosage: 325 MG
     Route: 048
     Dates: start: 20200213

REACTIONS (3)
  - Cardiac arrest [Recovered/Resolved]
  - Ventricular tachycardia [Recovered/Resolved]
  - Hypotension [Recovered/Resolved]

NARRATIVE: CASE EVENT DATE: 20200213
